FAERS Safety Report 5126912-1 (Version None)
Quarter: 2006Q4

REPORT INFORMATION
  Report Type: 
  Country: None (occurrence: None)
  Receive Date: 20061011
  Receipt Date: 20061011
  Transmission Date: 20070319
  Serious: Yes (Hospitalization)
  Sender: FDA-Public Use
  Company Number: None

PATIENT
  Age: 45 Year
  Sex: Female
  Weight: 47.6277 kg

DRUGS (72)
  1. ABRAXANE [Suspect]
     Indication: OVARIAN CANCER
     Dosage: 145.0MG/M2 D1,D8,D15 042  OVER 30 MINNS
     Dates: start: 20060330
  2. ABRAXANE [Suspect]
     Indication: RECURRENT CANCER
     Dosage: 145.0MG/M2 D1,D8,D15 042  OVER 30 MINNS
     Dates: start: 20060330
  3. CARBOPLATIN [Suspect]
     Indication: OVARIAN CANCER
     Dosage: 465MG/M2 Q 28 DAYS 042  OVER 1 HOUR
     Dates: start: 20060315
  4. CARBOPLATIN [Suspect]
     Indication: RECURRENT CANCER
     Dosage: 465MG/M2 Q 28 DAYS 042  OVER 1 HOUR
     Dates: start: 20060315
  5. DOXIL [Suspect]
     Indication: OVARIAN CANCER
     Dosage: 58.0MG/M2 Q 28 DAYS 042
     Dates: start: 20060525
  6. DOXIL [Suspect]
     Indication: RECURRENT CANCER
     Dosage: 58.0MG/M2 Q 28 DAYS 042
     Dates: start: 20060525
  7. SOD CL 0.9% (ZOFRAN) [Concomitant]
  8. HEPARIN (HEPRAIN FLUSH) [Concomitant]
  9. TRIAMTERENE (DYAZIDE) [Concomitant]
  10. ACETAMINOPHEN TABLET (TYLENOL) [Concomitant]
  11. NALOXONE (NARCAN) [Concomitant]
  12. ZOFRAN [Concomitant]
  13. AMITRIPTYLINE (ELAVIL) [Concomitant]
  14. PANTOPRAZOLE (PROTONIX) [Concomitant]
  15. FENTANYL TRANSDERMAL SYSTEM [Concomitant]
  16. ESTRADIOL PATCH (VIVELLE) [Concomitant]
  17. D5/0.45NS-KCL20MEQ [Concomitant]
  18. PIPERACILLIN/TAZ (ZOSYN) [Concomitant]
  19. VANCOMYCIN [Concomitant]
  20. LORAZEPAM INJECTION (ATIVAN) [Concomitant]
  21. TYLENOL SUPPOSITORY [Concomitant]
  22. AMBIEN [Concomitant]
  23. HYDROMORPHONE INJ [Concomitant]
  24. OXYCODONE (ROXICET) [Concomitant]
  25. OXCODONE (PROCOCET) [Concomitant]
  26. PHENERGAN [Concomitant]
  27. CONCIDES [Concomitant]
  28. BLD GLUCOSE [Concomitant]
  29. HYPERAL AD CENTR [Concomitant]
  30. FAT EMULSION [Concomitant]
  31. ALBUMIN (HUMAN) [Concomitant]
  32. DEXTROSE [Concomitant]
  33. MAZZIDE [Concomitant]
  34. COUMADIN [Concomitant]
  35. LOVENOX [Concomitant]
  36. ACCUV BID [Concomitant]
  37. ATIVAN [Concomitant]
  38. HYDROMORPHONE HCL [Concomitant]
  39. REGLAN [Concomitant]
  40. DIPHENHYDRAMINE (BENADRYL) [Concomitant]
  41. OXYCODONE-ACET [Concomitant]
  42. D5/0.45NACL [Concomitant]
  43. AMITRIPTYLINE (ELVAIL) [Concomitant]
  44. PANTOPRAZOLE SODIUM [Concomitant]
  45. ESTRADIOL (VIVELLE) [Concomitant]
  46. LEVAQUIN [Concomitant]
  47. PROTONIX [Concomitant]
  48. HEPANIE FLUSH [Concomitant]
  49. ESTRADEM PATCH [Concomitant]
  50. DECADRON [Concomitant]
  51. TAGAMENT [Concomitant]
  52. EMMEND [Concomitant]
  53. NEUPOGEN [Concomitant]
  54. ARANESP [Concomitant]
  55. ABRAXANE [Concomitant]
  56. CARBOPLATIN [Concomitant]
  57. DOXIL [Concomitant]
  58. FENTANYL TRANSDERMAL SYSTEM [Concomitant]
  59. D5/045NS-KCL MEQ [Concomitant]
  60. VANCOMYCIN [Concomitant]
  61. ZOSYN [Concomitant]
  62. GEMTAMICIN [Concomitant]
  63. DAPTOMYCIN [Concomitant]
  64. OXCODONE (ROXICET) [Concomitant]
  65. PROMETHAZINE (PHENERGAN) [Concomitant]
  66. SOD CL 0.9% [Concomitant]
  67. PREMED WITH BENADRYL [Concomitant]
  68. MAALOX FAST BLOCKER [Concomitant]
  69. TROUGH [Concomitant]
  70. AMPICILLIN SODIUM [Concomitant]
  71. OXYCODONE (PERCOET) [Concomitant]
  72. FAT EMULSION 20% [Concomitant]

REACTIONS (6)
  - ABDOMINAL DISTENSION [None]
  - CHILLS [None]
  - NAUSEA [None]
  - PAIN [None]
  - PYREXIA [None]
  - VOMITING [None]
